FAERS Safety Report 8347655-7 (Version None)
Quarter: 2012Q2

REPORT INFORMATION
  Report Type: 
  Country: None (occurrence: None)
  Receive Date: 20120507
  Receipt Date: 20120424
  Transmission Date: 20120825
  Serious: Yes (Other)
  Sender: FDA-Public Use
  Company Number: 2012SP021971

PATIENT
  Age: 84 Year
  Sex: Female

DRUGS (9)
  1. MIRTAZAPINE [Suspect]
     Indication: DEPRESSION
     Dosage: 15 MG;QD;PO
     Route: 048
     Dates: start: 20120413
  2. DONEPEZIL HCL [Concomitant]
  3. SEROQUEL [Suspect]
     Indication: PRODUCT USED FOR UNKNOWN INDICATION
     Dosage: 25 MG;QD;PO
     Route: 048
     Dates: end: 20120421
  4. TRIAZOLAM [Concomitant]
  5. RANITIDINE [Concomitant]
  6. SENNOSIDE A+B [Concomitant]
  7. ACETAMINOPHEN [Concomitant]
  8. HYDROCHLORIDE [Concomitant]
  9. URSODIOL [Concomitant]

REACTIONS (2)
  - TREMOR [None]
  - DRUG INTERACTION [None]
